FAERS Safety Report 10051693 (Version 1)
Quarter: 2014Q2

REPORT INFORMATION
  Report Type: Report from Study
  Country: US (occurrence: US)
  Receive Date: 20140401
  Receipt Date: 20140401
  Transmission Date: 20141212
  Serious: Yes (Other)
  Sender: FDA-Public Use
  Company Number: US-ABBVIE-14P-163-1215904-00

PATIENT
  Sex: Female
  Weight: 110.32 kg

DRUGS (10)
  1. HUMIRA [Suspect]
     Indication: CROHN^S DISEASE
     Dates: start: 2013, end: 2013
  2. HUMIRA [Suspect]
     Dosage: TWO WEEKS AFTER 160 MG DOSE
     Dates: start: 2013, end: 2013
  3. HUMIRA [Suspect]
     Dosage: FOUR WEEKS AFTER 160 MG DOSE
     Dates: start: 2013
  4. PAXIL [Concomitant]
     Indication: DEPRESSION
  5. TRAZODONE [Concomitant]
     Indication: INSOMNIA
  6. SULFASALAZINE [Concomitant]
     Indication: CROHN^S DISEASE
  7. BENTYL [Concomitant]
     Indication: CROHN^S DISEASE
  8. NEXIUM [Concomitant]
     Indication: OESOPHAGEAL ULCER
  9. NASONEX [Concomitant]
     Indication: HYPERSENSITIVITY
  10. MULTIVITAMIN [Concomitant]
     Indication: PRODUCT USED FOR UNKNOWN INDICATION

REACTIONS (7)
  - Anal fistula [Recovered/Resolved]
  - Cyst [Recovered/Resolved]
  - Infected cyst [Recovered/Resolved]
  - Uterine pain [Recovered/Resolved]
  - Varicose veins pelvic [Recovered/Resolved]
  - Migraine [Not Recovered/Not Resolved]
  - Oral herpes [Unknown]
